FAERS Safety Report 24825138 (Version 1)
Quarter: 2025Q1

REPORT INFORMATION
  Report Type: Spontaneous
  Country: US (occurrence: None)
  Receive Date: 20250108
  Receipt Date: 20250108
  Transmission Date: 20250409
  Serious: Yes (Death)
  Sender: FDA-CTU
  Company Number: None

PATIENT
  Age: 64 Year
  Sex: Male

DRUGS (2)
  1. MYFORTIC [Suspect]
     Active Substance: MYCOPHENOLATE SODIUM
     Indication: Renal transplant
     Dosage: 720 MG TWICE A DAY ORAL ?
     Route: 048
     Dates: start: 20200223, end: 20241231
  2. CYCLOSPORINE [Suspect]
     Active Substance: CYCLOSPORINE
     Indication: Renal transplant
     Dosage: 100 MG TWICE A DAY ORAL ?
     Route: 048
     Dates: start: 20230208, end: 20241231

REACTIONS (1)
  - Death [None]

NARRATIVE: CASE EVENT DATE: 20250107
